FAERS Safety Report 25688123 (Version 1)
Quarter: 2025Q3

REPORT INFORMATION
  Report Type: Report from Study
  Country: CA (occurrence: CA)
  Receive Date: 20250818
  Receipt Date: 20250818
  Transmission Date: 20251020
  Serious: Yes (Other)
  Sender: Alvotech
  Company Number: CA-JAMP PHARMA CORPORATION-2023-JAM-CA-00708

PATIENT
  Age: 10 Year
  Sex: Male

DRUGS (3)
  1. SIMLANDI [Suspect]
     Active Substance: ADALIMUMAB-RYVK
     Indication: Uveitis
     Dosage: 40 MILLIGRAM, WEEKLY
     Route: 058
  2. SIMLANDI [Suspect]
     Active Substance: ADALIMUMAB-RYVK
     Indication: Uveitis
     Dosage: 40 MILLIGRAM, EVERY OTHER WEEK
     Route: 058
  3. SIMLANDI [Suspect]
     Active Substance: ADALIMUMAB-RYVK
     Indication: Uveitis
     Dosage: UNK, EVERY OTHER WEEK
     Route: 058
     Dates: start: 20230411

REACTIONS (7)
  - Juvenile idiopathic arthritis [Unknown]
  - Uveitis [Unknown]
  - Inflammation [Unknown]
  - Product dose omission issue [Unknown]
  - Product dispensing issue [Unknown]
  - Inappropriate schedule of product administration [Unknown]
  - Off label use [Unknown]

NARRATIVE: CASE EVENT DATE: 20230510
